FAERS Safety Report 18112307 (Version 3)
Quarter: 2022Q1

REPORT INFORMATION
  Report Type: Report from Study
  Country: US (occurrence: None)
  Receive Date: 20200805
  Receipt Date: 20220325
  Transmission Date: 20220423
  Serious: Yes (Hospitalization)
  Sender: FDA-Public Use
  Company Number: US-MERCK HEALTHCARE KGAA-9178394

PATIENT
  Age: 73 Year
  Sex: Female
  Weight: 78 kg

DRUGS (1)
  1. REBIF [Suspect]
     Active Substance: INTERFERON BETA-1A
     Indication: Multiple sclerosis
     Route: 058
     Dates: start: 20060615

REACTIONS (9)
  - Intestinal mucosal tear [Recovered/Resolved]
  - Intestinal haemorrhage [Recovered/Resolved]
  - Iron deficiency [Unknown]
  - Dehydration [Unknown]
  - Anaemia [Recovering/Resolving]
  - Injection site swelling [Unknown]
  - Pain in extremity [Unknown]
  - Burning sensation [Unknown]
  - Product dose omission issue [Recovered/Resolved]

NARRATIVE: CASE EVENT DATE: 20200701
